FAERS Safety Report 19771755 (Version 3)
Quarter: 2021Q4

REPORT INFORMATION
  Report Type: Report from Study
  Country: MX (occurrence: MX)
  Receive Date: 20210901
  Receipt Date: 20211124
  Transmission Date: 20220304
  Serious: Yes (Death, Hospitalization, Other)
  Sender: FDA-Public Use
  Company Number: NVSC2021MX197738

PATIENT
  Age: 67 Year
  Sex: Male

DRUGS (4)
  1. EXFORGE [Suspect]
     Active Substance: AMLODIPINE BESYLATE\VALSARTAN
     Indication: Hypertension
     Dosage: 1 DF, QD (160/5MG) (10 MONTHS AGO)
     Route: 048
     Dates: start: 202009, end: 202107
  2. LINAGLIPTIN [Concomitant]
     Active Substance: LINAGLIPTIN
     Indication: Diabetes mellitus
     Dosage: 1 DF, QD
     Route: 048
     Dates: start: 202009, end: 20210706
  3. NOVEFAZOL [Concomitant]
     Indication: Blood potassium increased
     Dosage: 1 DF, QD
     Route: 048
     Dates: start: 202009, end: 20210706
  4. VITAMINS [Concomitant]
     Active Substance: VITAMINS
     Indication: Product used for unknown indication
     Dosage: 1 DF, QD
     Route: 048
     Dates: start: 202009, end: 20210706

REACTIONS (3)
  - Myocardial infarction [Fatal]
  - Renal failure [Fatal]
  - Large intestine perforation [Recovered/Resolved with Sequelae]

NARRATIVE: CASE EVENT DATE: 20200901
